FAERS Safety Report 13870039 (Version 2)
Quarter: 2017Q3

REPORT INFORMATION
  Report Type: Spontaneous
  Country: JP (occurrence: JP)
  Receive Date: 20170815
  Receipt Date: 20170830
  Transmission Date: 20171127
  Serious: Yes (Other)
  Sender: FDA-Public Use
  Company Number: JP-BAUSCH-BL-2017-023994

PATIENT
  Age: 58 Year
  Sex: Male

DRUGS (2)
  1. MOVIPREP [Suspect]
     Active Substance: ASCORBIC ACID\POLYETHYLENE GLYCOL 3350\POTASSIUM CHLORIDE\SODIUM ASCORBATE\SODIUM CHLORIDE\SODIUM SULFATE
     Indication: BOWEL PREPARATION
     Dosage: 1 LITER
     Route: 048
  2. GLYCYRRHIZIN [Concomitant]
     Active Substance: GLYCYRRHIZIN
     Indication: PRODUCT USED FOR UNKNOWN INDICATION

REACTIONS (8)
  - Blister [Unknown]
  - Oedema mucosal [Unknown]
  - Hypoaesthesia [Unknown]
  - Escherichia sepsis [Unknown]
  - Haemorrhage [Unknown]
  - Ulcer [Unknown]
  - Bone abscess [Unknown]
  - Adhesion [Unknown]
